FAERS Safety Report 5569680-1 (Version None)
Quarter: 2007Q4

REPORT INFORMATION
  Report Type: 
  Country: None (occurrence: None)
  Receive Date: 20071220
  Receipt Date: 20071220
  Transmission Date: 20080405
  Serious: No
  Sender: FDA-Public Use
  Company Number: B0500481A

PATIENT
  Age: 35 Year
  Sex: Male

DRUGS (1)
  1. KIVEXA [Suspect]
     Indication: HIV INFECTION
     Route: 065
     Dates: start: 20071212

REACTIONS (5)
  - FATIGUE [None]
  - FEELING ABNORMAL [None]
  - HEAD DISCOMFORT [None]
  - NUCHAL RIGIDITY [None]
  - SENSATION OF HEAVINESS [None]
